FAERS Safety Report 5609564-3 (Version None)
Quarter: 2008Q1

REPORT INFORMATION
  Report Type: 
  Country: None (occurrence: None)
  Receive Date: 20080131
  Receipt Date: 20080123
  Transmission Date: 20080703
  Serious: Yes (Life-Threatening, Hospitalization, Congenital Anomaly)
  Sender: FDA-Public Use
  Company Number: A0640663A

PATIENT
  Sex: Male
  Weight: 2.4 kg

DRUGS (5)
  1. PAXIL CR [Suspect]
     Indication: ANXIETY
     Dates: start: 20021104
  2. TYLENOL [Concomitant]
     Dates: start: 20040101
  3. IBUPROFEN [Concomitant]
     Dates: start: 19950101
  4. PRENATAL VITAMINS [Concomitant]
     Dates: start: 20030901, end: 20040201
  5. ALBUTEROL [Concomitant]

REACTIONS (27)
  - ABNORMAL BEHAVIOUR [None]
  - AGGRESSION [None]
  - ANDROGEN DEFICIENCY [None]
  - ANORCHISM [None]
  - AUTISM [None]
  - AUTISM SPECTRUM DISORDER [None]
  - CONGENITAL GENITAL MALFORMATION [None]
  - CRYPTORCHISM [None]
  - DEVELOPMENTAL DELAY [None]
  - DRUG EXPOSURE DURING PREGNANCY [None]
  - FEBRILE CONVULSION [None]
  - FEEDING DISORDER NEONATAL [None]
  - FOETAL MOVEMENTS DECREASED [None]
  - GROWTH RETARDATION [None]
  - HAEMANGIOMA [None]
  - HEART DISEASE CONGENITAL [None]
  - INFERTILITY [None]
  - INJURY [None]
  - INTENTIONAL SELF-INJURY [None]
  - LUNG DISORDER [None]
  - PAIN [None]
  - PERSISTENT FOETAL CIRCULATION [None]
  - PHYSICAL TESTICLE EXAMINATION ABNORMAL [None]
  - PLAGIOCEPHALY [None]
  - PREMATURE BABY [None]
  - PSYCHOMOTOR SKILLS IMPAIRED [None]
  - SPEECH DISORDER DEVELOPMENTAL [None]
